FAERS Safety Report 24631931 (Version 1)
Quarter: 2024Q4

REPORT INFORMATION
  Report Type: Spontaneous
  Country: CN (occurrence: CN)
  Receive Date: 20241118
  Receipt Date: 20241118
  Transmission Date: 20250115
  Serious: Yes (Hospitalization, Other)
  Sender: BAYER HEALTHCARE PHARMACEUTICALS INC.
  Company Number: CN-BAYER-2024A164037

PATIENT
  Age: 86 Year
  Sex: Male
  Weight: 64 kg

DRUGS (2)
  1. GLUCOBAY [Interacting]
     Active Substance: ACARBOSE
     Indication: Type 2 diabetes mellitus
     Dosage: 50 MG, TID
     Route: 048
     Dates: end: 20241102
  2. METFORMIN HYDROCHLORIDE [Interacting]
     Active Substance: METFORMIN HYDROCHLORIDE
     Indication: Type 2 diabetes mellitus
     Dosage: 0.5 G, TID
     Route: 048
     Dates: end: 20241102

REACTIONS (12)
  - Hypoglycaemia [Recovering/Resolving]
  - Asthenia [Recovering/Resolving]
  - Syncope [Recovered/Resolved]
  - Unresponsive to stimuli [Recovering/Resolving]
  - Fall [None]
  - Head injury [None]
  - Mouth injury [None]
  - Muscular weakness [Recovering/Resolving]
  - Gait inability [None]
  - Depressed mood [None]
  - Respiratory rate increased [None]
  - Dizziness [None]

NARRATIVE: CASE EVENT DATE: 20241031
